FAERS Safety Report 22693826 (Version 3)
Quarter: 2024Q1

REPORT INFORMATION
  Report Type: Spontaneous
  Country: IT (occurrence: IT)
  Receive Date: 20230711
  Receipt Date: 20240207
  Transmission Date: 20240409
  Serious: Yes (Life-Threatening)
  Sender: FDA-Public Use
  Company Number: None

PATIENT
  Age: 76 Year
  Sex: Male
  Weight: 70 kg

DRUGS (1)
  1. HEPARIN SODIUM [Suspect]
     Active Substance: HEPARIN SODIUM
     Indication: Thrombosis prophylaxis
     Dosage: 25000 IU (6000 IU IN BOLUS)
     Route: 042
     Dates: start: 20230523, end: 20230523

REACTIONS (2)
  - Drug ineffective [Recovered/Resolved]
  - Coronary artery thrombosis [Recovered/Resolved]

NARRATIVE: CASE EVENT DATE: 20230523
